FAERS Safety Report 10802517 (Version 1)
Quarter: 2015Q1

REPORT INFORMATION
  Report Type: Spontaneous
  Country: US (occurrence: US)
  Receive Date: 20150217
  Receipt Date: 20150217
  Transmission Date: 20150721
  Serious: No
  Sender: FDA-Public Use
  Company Number: US-AMARIN PHARMA, INC.-2014AMR000109

PATIENT
  Sex: Male

DRUGS (2)
  1. VASCEPA [Suspect]
     Active Substance: ETHYL ICOSAPENTATE
     Indication: WEIGHT
     Route: 065
     Dates: start: 20141219, end: 20141220
  2. VASCEPA [Suspect]
     Active Substance: ETHYL ICOSAPENTATE
     Indication: BLOOD CHOLESTEROL

REACTIONS (3)
  - Back pain [Not Recovered/Not Resolved]
  - Diarrhoea [Recovered/Resolved]
  - Abdominal pain [Recovered/Resolved]

NARRATIVE: CASE EVENT DATE: 20141219
